FAERS Safety Report 21509816 (Version 1)
Quarter: 2022Q4

REPORT INFORMATION
  Report Type: Spontaneous
  Country: JP (occurrence: JP)
  Receive Date: 20221026
  Receipt Date: 20221026
  Transmission Date: 20230113
  Serious: Yes (Other)
  Sender: FDA-Public Use
  Company Number: JP-JAZZ-2021-JP-010237

PATIENT
  Age: 57 Year
  Sex: Male
  Weight: 52 kg

DRUGS (3)
  1. DEFITELIO [Suspect]
     Active Substance: DEFIBROTIDE SODIUM
     Indication: Venoocclusive liver disease
     Dosage: 25 MILLIGRAM/KILOGRAM, QD
     Route: 042
     Dates: start: 20200306, end: 20200410
  2. DEFITELIO [Suspect]
     Active Substance: DEFIBROTIDE SODIUM
     Dosage: 25 MILLIGRAM/KILOGRAM, QD
     Route: 042
     Dates: start: 20200509, end: 20200629
  3. THROMBOMODULIN ALFA [Concomitant]
     Active Substance: THROMBOMODULIN ALFA
     Indication: Product used for unknown indication
     Dosage: GENETICAL RECOMBINATION
     Dates: end: 20200626

REACTIONS (4)
  - Graft versus host disease [Recovered/Resolved]
  - Cytomegalovirus test positive [Recovered/Resolved]
  - Venoocclusive liver disease [Unknown]
  - Off label use [Unknown]

NARRATIVE: CASE EVENT DATE: 20200101
